FAERS Safety Report 8280918-2 (Version None)
Quarter: 2012Q2

REPORT INFORMATION
  Report Type: 
  Country: None (occurrence: None)
  Receive Date: 20120412
  Receipt Date: 20120409
  Transmission Date: 20120825
  Serious: Yes (Death, Hospitalization)
  Sender: FDA-Public Use
  Company Number: PT-BAXTER-2010BH021507

PATIENT
  Sex: Male

DRUGS (3)
  1. PHYSIONEAL 35 GLUCOSE 1,36% P/V/ 13,6 MG/ML [Suspect]
     Route: 033
     Dates: start: 20060301
  2. EXTRANEAL [Suspect]
     Route: 033
     Dates: start: 20060301
  3. PHYSIONEAL 35 GLUCOSE 1,36% P/V/ 13,6 MG/ML [Suspect]
     Route: 033
     Dates: start: 20060301

REACTIONS (6)
  - HYPOKALAEMIA [None]
  - DEHYDRATION [None]
  - ACUTE MYOCARDIAL INFARCTION [None]
  - DEATH [None]
  - DIARRHOEA [None]
  - CACHEXIA [None]
